FAERS Safety Report 4318844-3 (Version None)
Quarter: 2004Q1

REPORT INFORMATION
  Report Type: 
  Country: None (occurrence: None)
  Receive Date: 20040317
  Receipt Date: 20040317
  Transmission Date: 20041129
  Serious: Yes (Other)
  Sender: FDA-Public Use
  Company Number: None

PATIENT
  Age: 67 Year
  Sex: Male
  Weight: 130.5 kg

DRUGS (1)
  1. MIDAZOLAM HCL [Suspect]
     Dosage: REST OF LOT (2 VIALS) SENT TO APP FOR ANALYSIS

REACTIONS (2)
  - DEPRESSED LEVEL OF CONSCIOUSNESS [None]
  - SEDATION [None]
